FAERS Safety Report 12503395 (Version 2)
Quarter: 2016Q2

REPORT INFORMATION
  Report Type: Spontaneous
  Country: US (occurrence: US)
  Receive Date: 20160628
  Receipt Date: 20160628
  Transmission Date: 20160815
  Serious: Yes (Other)
  Sender: FDA-Public Use
  Company Number: US-CIPLA LTD.-2016US08225

PATIENT

DRUGS (1)
  1. AMLODIPINE BESYLATE. [Suspect]
     Active Substance: AMLODIPINE BESYLATE
     Indication: HYPERTENSION
     Dosage: 10 MG, QD (1 TABLET ONCE DAILY)
     Route: 048
     Dates: start: 2014

REACTIONS (3)
  - Product solubility abnormal [Unknown]
  - Dyspnoea [Unknown]
  - Pharyngeal inflammation [Recovered/Resolved]
